FAERS Safety Report 6840815-3 (Version None)
Quarter: 2010Q3

REPORT INFORMATION
  Report Type: 
  Country: None (occurrence: None)
  Receive Date: 20100714
  Receipt Date: 20100706
  Transmission Date: 20110219
  Serious: Yes (Other)
  Sender: FDA-Public Use
  Company Number: JP-B.I. PHARMACEUTICALS,INC./RIDGEFIELD-2010-BP-07883YA

PATIENT
  Age: 69 Year
  Sex: Male

DRUGS (4)
  1. HARNAL (TAMSULOSIN) ORODISPERSABLE CR [Suspect]
     Dosage: 0.2 MG
     Route: 048
  2. AMLODIPINE BESYLATE [Concomitant]
  3. CANDESARTAN CILEXETIL [Concomitant]
  4. ARICEPT [Concomitant]

REACTIONS (1)
  - DEMENTIA [None]
